FAERS Safety Report 13591719 (Version 1)
Quarter: 2017Q2

REPORT INFORMATION
  Report Type: Spontaneous
  Country: US (occurrence: US)
  Receive Date: 20170530
  Receipt Date: 20170530
  Transmission Date: 20170830
  Serious: Yes (Other)
  Sender: FDA-Public Use
  Company Number: None

PATIENT
  Age: 57 Year
  Sex: Male
  Weight: 92.25 kg

DRUGS (7)
  1. LISINOPRIL ORAL TABLET 10MG [Suspect]
     Active Substance: LISINOPRIL
     Indication: TYPE 2 DIABETES MELLITUS
     Dosage: ?          QUANTITY:90 TABLET(S);?
     Route: 048
     Dates: start: 20170515, end: 20170524
  2. B VITAMINS [Concomitant]
     Active Substance: CYANOCOBALAMIN\DEXPANTHENOL\NIACINAMIDE\PYRIDOXINE HYDROCHLORIDE\RIBOFLAVIN 5^-PHOSPHATE SODIUM\THIAMINE HYDROCHLORIDE\VITAMIN B COMPLEX
  3. LISINOPRIL ORAL TABLET 10MG [Suspect]
     Active Substance: LISINOPRIL
     Indication: HYPERTENSION
     Dosage: ?          QUANTITY:90 TABLET(S);?
     Route: 048
     Dates: start: 20170515, end: 20170524
  4. GLIMIPRIDE [Concomitant]
     Active Substance: GLIMEPIRIDE
  5. CHROMIUM [Concomitant]
     Active Substance: CHROMIC CHLORIDE\CHROMIUM
  6. METFORMIN [Concomitant]
     Active Substance: METFORMIN HYDROCHLORIDE
  7. CINNAMON. [Concomitant]
     Active Substance: CINNAMON

REACTIONS (10)
  - Drug interaction [None]
  - Fatigue [None]
  - Tic [None]
  - Heart rate increased [None]
  - Dysuria [None]
  - Pyrexia [None]
  - Chills [None]
  - Malaise [None]
  - Infection [None]
  - Hypertension [None]

NARRATIVE: CASE EVENT DATE: 20170524
